FAERS Safety Report 7909937-X (Version None)
Quarter: 2011Q4

REPORT INFORMATION
  Report Type: 
  Country: None (occurrence: None)
  Receive Date: 20111111
  Receipt Date: 20111101
  Transmission Date: 20120403
  Serious: Yes (Hospitalization, Other)
  Sender: FDA-Public Use
  Company Number: US-BAYER-2011-052679

PATIENT
  Age: 25 Year
  Sex: Female

DRUGS (4)
  1. CIPROFLOXACIN [Concomitant]
     Indication: URINARY TRACT INFECTION
  2. MACROBID [Concomitant]
     Indication: URINARY TRACT INFECTION
     Dosage: UNK
     Dates: start: 20090803
  3. NAPROXEN (ALEVE) [Concomitant]
     Indication: PAIN
  4. YASMIN [Suspect]
     Indication: CONTRACEPTION
     Dosage: UNK
     Dates: start: 20090101

REACTIONS (3)
  - NEPHROLITHIASIS [None]
  - PAIN [None]
  - CALCULUS URETERIC [None]
